FAERS Safety Report 4880866-1 (Version None)
Quarter: 2005Q4

REPORT INFORMATION
  Report Type: 
  Country: None (occurrence: None)
  Receive Date: 20051223
  Receipt Date: 20051109
  Transmission Date: 20060501
  Serious: No
  Sender: FDA-Public Use
  Company Number: 05P-163-0316988-00

PATIENT
  Age: 58 Year
  Sex: Female
  Weight: 86.1834 kg

DRUGS (4)
  1. HUMIRA [Suspect]
     Indication: RHEUMATOID ARTHRITIS
     Dosage: 40 MG, 1 IN 2 WKS, SUBCUTANEOUS
     Dates: start: 20050301
  2. ATENOLOL [Concomitant]
  3. DIOVAN [Concomitant]
  4. LEFLUNOMIDE [Concomitant]

REACTIONS (5)
  - DIARRHOEA [None]
  - INFLUENZA [None]
  - NASOPHARYNGITIS [None]
  - THERAPEUTIC RESPONSE UNEXPECTED [None]
  - VOMITING [None]
